FAERS Safety Report 5411197-9 (Version None)
Quarter: 2007Q3

REPORT INFORMATION
  Report Type: 
  Country: None (occurrence: None)
  Receive Date: 20070810
  Receipt Date: 20070809
  Transmission Date: 20080115
  Serious: Yes (Death)
  Sender: FDA-Public Use
  Company Number: A0669258A

PATIENT
  Age: 74 Year
  Sex: Female
  Weight: 80 kg

DRUGS (3)
  1. SERETIDE [Suspect]
     Indication: CHRONIC OBSTRUCTIVE PULMONARY DISEASE
     Route: 055
     Dates: start: 20040101, end: 20070108
  2. CAPTOPRIL [Concomitant]
     Dates: start: 20040101, end: 20070101
  3. SIMVASTATIN [Concomitant]
     Dates: start: 20020101, end: 20070101

REACTIONS (1)
  - DEATH [None]
